FAERS Safety Report 4785591-3 (Version None)
Quarter: 2005Q4

REPORT INFORMATION
  Report Type: 
  Country: None (occurrence: None)
  Receive Date: 20051003
  Receipt Date: 20050927
  Transmission Date: 20060501
  Serious: Yes (Hospitalization)
  Sender: FDA-Public Use
  Company Number: NO-GLAXOSMITHKLINE-B0395501A

PATIENT
  Age: 40 Year
  Sex: Female

DRUGS (2)
  1. LAMICTAL [Suspect]
     Indication: EPILEPSY
     Dosage: 50MG PER DAY
     Route: 048
     Dates: start: 20050620, end: 20050704
  2. TEGRETOL [Concomitant]
     Indication: EPILEPSY
     Route: 048

REACTIONS (6)
  - BACK PAIN [None]
  - CHILLS [None]
  - HEADACHE [None]
  - MENINGITIS ASEPTIC [None]
  - PYREXIA [None]
  - RASH ERYTHEMATOUS [None]
